FAERS Safety Report 6837773-4 (Version None)
Quarter: 2010Q3

REPORT INFORMATION
  Report Type: 
  Country: None (occurrence: None)
  Receive Date: 20100713
  Receipt Date: 20100706
  Transmission Date: 20110219
  Serious: Yes (Other)
  Sender: FDA-Public Use
  Company Number: US-AMGEN-QUU422515

PATIENT
  Sex: Male

DRUGS (3)
  1. ARANESP [Suspect]
     Indication: RENAL FAILURE CHRONIC
     Dates: start: 20100101, end: 20100701
  2. EPOETIN ALFA [Suspect]
     Route: 058
     Dates: start: 20070101, end: 20100101
  3. VITAMIN D [Concomitant]

REACTIONS (3)
  - APLASIA PURE RED CELL [None]
  - BONE MARROW MYELOGRAM ABNORMAL [None]
  - THERAPEUTIC RESPONSE DECREASED [None]
